FAERS Safety Report 8266953 (Version 8)
Quarter: 2013Q2

REPORT INFORMATION
  Report Type: Spontaneous
  Country: CA (occurrence: CA)
  Receive Date: 20111129
  Receipt Date: 20130410
  Transmission Date: 20140414
  Serious: Yes (Life-Threatening, Hospitalization, Other)
  Sender: FDA-Public Use
  Company Number: PHHY2011CA098589

PATIENT
  Sex: Male

DRUGS (2)
  1. SANDOSTATIN LAR [Suspect]
     Indication: METASTATIC CARCINOID TUMOUR
     Dosage: 30 MG ONCE A MONTH
     Route: 030
     Dates: start: 20091204
  2. SANDOSTATIN LAR [Suspect]
     Dosage: 30 MG, EVERY 4 WEEKS
     Route: 030
     Dates: end: 20121203

REACTIONS (9)
  - Terminal state [Unknown]
  - Anaemia [Unknown]
  - Colon neoplasm [Unknown]
  - Dyspnoea [Unknown]
  - Asthenia [Unknown]
  - Pallor [Unknown]
  - Weight decreased [Unknown]
  - Fatigue [Unknown]
  - Injection site pain [Unknown]
